FAERS Safety Report 7161837-1 (Version None)
Quarter: 2010Q4

REPORT INFORMATION
  Report Type: 
  Country: None (occurrence: None)
  Receive Date: 20101202
  Receipt Date: 20101129
  Transmission Date: 20110411
  Serious: Yes (Hospitalization)
  Sender: FDA-Public Use
  Company Number: USA/USA/10/0016790

PATIENT
  Age: 32 Year
  Sex: Female

DRUGS (1)
  1. CITALOPRAM (CITALOPRAM HYDROBROMIDE) [Suspect]
     Indication: DEPRESSION
     Dates: start: 20101001, end: 20100101

REACTIONS (2)
  - ANXIETY [None]
  - CRYING [None]
